FAERS Safety Report 6357279-9 (Version None)
Quarter: 2009Q3

REPORT INFORMATION
  Report Type: 
  Country: None (occurrence: None)
  Receive Date: 20090916
  Receipt Date: 20090904
  Transmission Date: 20100115
  Serious: Yes (Other)
  Sender: FDA-Public Use
  Company Number: PHHY2009CA38264

PATIENT

DRUGS (1)
  1. CO-DIOVAN T32564+ [Suspect]
     Dosage: 160/12.5 MG

REACTIONS (3)
  - HYPERTENSION [None]
  - IGA NEPHROPATHY [None]
  - PROTEIN URINE PRESENT [None]
